FAERS Safety Report 14006933 (Version 3)
Quarter: 2018Q2

REPORT INFORMATION
  Report Type: Spontaneous
  Country: US (occurrence: US)
  Receive Date: 20170925
  Receipt Date: 20180522
  Transmission Date: 20180711
  Serious: No
  Sender: FDA-Public Use
  Company Number: US-PFIZER INC-2017411608

PATIENT
  Age: 47 Year
  Sex: Female

DRUGS (1)
  1. XELJANZ XR [Suspect]
     Active Substance: TOFACITINIB CITRATE
     Indication: RHEUMATOID ARTHRITIS
     Dosage: 11 MG, DAILY
     Route: 048
     Dates: start: 20170816

REACTIONS (5)
  - Condition aggravated [Unknown]
  - Paranasal sinus hypersecretion [Unknown]
  - Nodule [Not Recovered/Not Resolved]
  - Seasonal allergy [Unknown]
  - Paranasal sinus discomfort [Unknown]
